FAERS Safety Report 16763329 (Version 1)
Quarter: 2019Q3

REPORT INFORMATION
  Report Type: Spontaneous
  Country: CN (occurrence: CN)
  Receive Date: 20190902
  Receipt Date: 20190902
  Transmission Date: 20191005
  Serious: Yes (Hospitalization)
  Sender: FDA-Public Use
  Company Number: CN-BAXTER-2019BAX016869

PATIENT
  Age: 35 Year
  Sex: Female
  Weight: 60 kg

DRUGS (12)
  1. 0.9% SODIUM CHLORIDE INJECTION [Suspect]
     Active Substance: SODIUM CHLORIDE
     Dosage: DOSE RE-INTRODUCED (ENDOXAN)
     Route: 042
  2. 0.9% SODIUM CHLORIDE INJECTION [Suspect]
     Active Substance: SODIUM CHLORIDE
     Indication: MEDICATION DILUTION
     Dosage: DILUTED WITH ENDOXAN (650 MG); DAY 1
     Route: 042
     Dates: start: 20190507, end: 20190507
  3. PHARMORUBICIN RD [Suspect]
     Active Substance: EPIRUBICIN
     Indication: BREAST CANCER
     Dosage: PHARMORUBICIN RD DILUTED WITH 0.9% NS (200 ML)
     Route: 041
     Dates: start: 20190507, end: 20190507
  4. TAXOTERE [Suspect]
     Active Substance: DOCETAXEL
     Indication: BREAST CANCER
     Dosage: TAXOTERE DILUTED WITH 0.9% NS (200 ML); DAY 1
     Route: 041
     Dates: start: 20190507, end: 20190507
  5. ENDOXAN [Suspect]
     Active Substance: CYCLOPHOSPHAMIDE
     Indication: BREAST CANCER
     Dosage: ENDOXAN DILUTED WITH 0.9% NS (80 ML)
     Route: 042
     Dates: start: 20190507, end: 20190507
  6. 0.9% SODIUM CHLORIDE INJECTION [Suspect]
     Active Substance: SODIUM CHLORIDE
     Dosage: DILUTED WITH PHARMORUBICIN RD (100 MG); DAY 1
     Route: 041
     Dates: start: 20190507, end: 20190507
  7. ENDOXAN [Suspect]
     Active Substance: CYCLOPHOSPHAMIDE
     Dosage: DOSE RE-INTRODUCED;
     Route: 042
  8. 0.9% SODIUM CHLORIDE INJECTION [Suspect]
     Active Substance: SODIUM CHLORIDE
     Dosage: DILUTED WITH TAXOTERE (100 MG); DAY 1
     Route: 041
     Dates: start: 20190507, end: 20190507
  9. 0.9% SODIUM CHLORIDE INJECTION [Suspect]
     Active Substance: SODIUM CHLORIDE
     Dosage: DOSE RE-INTRODUCED (TAXOTERE)
     Route: 041
  10. 0.9% SODIUM CHLORIDE INJECTION [Suspect]
     Active Substance: SODIUM CHLORIDE
     Dosage: DOSE RE-INTRODUCED (PHARMORUBICIN RD)
     Route: 041
  11. TAXOTERE [Suspect]
     Active Substance: DOCETAXEL
     Dosage: DOSE RE-INTRODUCED
     Route: 041
  12. PHARMORUBICIN RD [Suspect]
     Active Substance: EPIRUBICIN
     Dosage: DOSE RE-INTRODUCED
     Route: 041

REACTIONS (1)
  - Bone marrow failure [Recovering/Resolving]

NARRATIVE: CASE EVENT DATE: 20190513
